FAERS Safety Report 15109473 (Version 2)
Quarter: 2018Q4

REPORT INFORMATION
  Report Type: Report from Study
  Country: None (occurrence: RO)
  Receive Date: 20180705
  Receipt Date: 20181008
  Transmission Date: 20190204
  Serious: Yes (Hospitalization, Other)
  Sender: FDA-Public Use
  Company Number: RO-ABBVIE-18K-135-2410018-00

PATIENT
  Age: 61 Year
  Sex: Male

DRUGS (7)
  1. TEOTARD [Concomitant]
     Active Substance: THEOPHYLLINE ANHYDROUS
     Indication: ASTHMA
     Route: 048
  2. NITROMINT [Concomitant]
     Active Substance: NITROGLYCERIN
     Indication: HYPERTENSION
     Route: 048
  3. METOPROLOL. [Concomitant]
     Active Substance: METOPROLOL
     Indication: HYPERTENSION
     Route: 048
     Dates: end: 201806
  4. HUMIRA [Suspect]
     Active Substance: ADALIMUMAB
     Indication: ANKYLOSING SPONDYLITIS
     Route: 058
     Dates: start: 20150815, end: 20180613
  5. ENAP [Concomitant]
     Active Substance: ENALAPRIL
     Indication: HYPERTENSION
     Route: 048
  6. OMNIC [Concomitant]
     Active Substance: TAMSULOSIN HYDROCHLORIDE
     Indication: PROSTATITIS
     Route: 048
  7. HUMIRA [Suspect]
     Active Substance: ADALIMUMAB
     Route: 058
     Dates: start: 2018

REACTIONS (7)
  - Pneumothorax [Recovered/Resolved]
  - Fall [Unknown]
  - Feeling abnormal [Recovered/Resolved]
  - Abdominal pain [Not Recovered/Not Resolved]
  - Loss of consciousness [Recovered/Resolved]
  - Rib fracture [Not Recovered/Not Resolved]
  - Spinal pain [Not Recovered/Not Resolved]

NARRATIVE: CASE EVENT DATE: 20180613
